FAERS Safety Report 16318514 (Version 1)
Quarter: 2019Q2

REPORT INFORMATION
  Report Type: Report from Study
  Country: US (occurrence: US)
  Receive Date: 20190516
  Receipt Date: 20190516
  Transmission Date: 20190711
  Serious: Yes (Hospitalization, Other)
  Sender: FDA-Public Use
  Company Number: US-BRISTOL-MYERS SQUIBB COMPANY-BMS-2019-046371

PATIENT
  Age: 64 Year
  Sex: Male
  Weight: 99.9 kg

DRUGS (2)
  1. NIVOLUMAB [Suspect]
     Active Substance: NIVOLUMAB
     Indication: MALIGNANT MELANOMA
     Dosage: 3 MILLIGRAM/KILOGRAM DAYS 1 AND 22
     Route: 042
     Dates: start: 20190226, end: 20190410
  2. IPILIMUMAB [Suspect]
     Active Substance: IPILIMUMAB
     Indication: MALIGNANT MELANOMA
     Dosage: 3 MILLIGRAM/KILOGRAM ON DAY 1 AND 22
     Route: 042
     Dates: start: 20190226

REACTIONS (3)
  - Pericardial effusion [Unknown]
  - Pericarditis [Unknown]
  - Generalised oedema [Unknown]

NARRATIVE: CASE EVENT DATE: 20190423
